FAERS Safety Report 19417597 (Version 1)
Quarter: 2021Q2

REPORT INFORMATION
  Report Type: Spontaneous
  Country: US (occurrence: US)
  Receive Date: 20210615
  Receipt Date: 20210615
  Transmission Date: 20210717
  Serious: Yes (Death)
  Sender: FDA-Public Use
  Company Number: None

PATIENT
  Age: 56 Year
  Sex: Female

DRUGS (1)
  1. TEMODAR [Suspect]
     Active Substance: TEMOZOLOMIDE
     Indication: BRAIN NEOPLASM MALIGNANT
     Dosage: 250MG DAILY FOR 5 DAYS OTHER ORAL
     Route: 048
     Dates: start: 20200701, end: 20210118

REACTIONS (1)
  - Death [None]

NARRATIVE: CASE EVENT DATE: 20210118
